FAERS Safety Report 8773964 (Version 15)
Quarter: 2015Q1

REPORT INFORMATION
  Report Type: Spontaneous
  Country: US (occurrence: US)
  Receive Date: 20120907
  Receipt Date: 20150330
  Transmission Date: 20150721
  Serious: Yes (Other)
  Sender: FDA-Public Use
  Company Number: US-PFIZER INC-2012218723

PATIENT
  Age: 71 Year
  Sex: Female
  Weight: 83 kg

DRUGS (24)
  1. SUTENT [Suspect]
     Active Substance: SUNITINIB MALATE
     Indication: METASTATIC RENAL CELL CARCINOMA
     Dosage: 50 MG, UNK
     Dates: start: 20120629
  2. HUMALOG [Concomitant]
     Active Substance: INSULIN LISPRO
     Indication: DIABETES MELLITUS
     Dosage: 12 IU, 3X/DAY
  3. SUTENT [Suspect]
     Active Substance: SUNITINIB MALATE
     Dosage: 25 MG, CYCLIC (14 DAYS ON, 14 DAYS OFF)
  4. XGEVA [Concomitant]
     Active Substance: DENOSUMAB
     Dosage: UNK
  5. LANTUS [Concomitant]
     Active Substance: INSULIN GLARGINE
     Indication: DIABETES MELLITUS
     Dosage: 45 MG, 1X/DAY (PRIOR TO MEALS)
  6. ZETIA [Concomitant]
     Active Substance: EZETIMIBE
     Indication: BLOOD CHOLESTEROL INCREASED
     Dosage: UNK
  7. SUTENT [Suspect]
     Active Substance: SUNITINIB MALATE
     Dosage: 37.5 MG, ONCE DAILY CYCLIC
     Route: 048
     Dates: start: 20121030
  8. SYNTHROID [Concomitant]
     Active Substance: LEVOTHYROXINE SODIUM
     Indication: THYROID DISORDER
     Dosage: 175 UG, 1X/DAY (IN MORNING)
  9. METOPROLOL [Concomitant]
     Active Substance: METOPROLOL
     Dosage: 35 UNK, UNK
  10. AMOXICILLIN. [Concomitant]
     Active Substance: AMOXICILLIN
  11. SUTENT [Suspect]
     Active Substance: SUNITINIB MALATE
     Dosage: 25 MG, DAILY FOR 2 WEEKS ON AND 1 WEEK OFF
     Dates: start: 20140102
  12. ATENOLOL. [Concomitant]
     Active Substance: ATENOLOL
     Dosage: UNK (25MG DIVIDED DOSE AM,PM)
  13. LISINOPRIL. [Concomitant]
     Active Substance: LISINOPRIL
     Indication: HYPERTENSION
     Dosage: 5 MG, 1X/DAY
  14. LEXAPRO [Concomitant]
     Active Substance: ESCITALOPRAM OXALATE
     Indication: DEPRESSION
     Dosage: UNK
  15. LOMOTIL [Concomitant]
     Active Substance: ATROPINE SULFATE\DIPHENOXYLATE HYDROCHLORIDE
  16. SUTENT [Suspect]
     Active Substance: SUNITINIB MALATE
     Dosage: 50 MG, 1X/DAY, 28 DAYS ON/14 DAYS OFF
     Route: 048
     Dates: start: 20120826, end: 20120913
  17. SUTENT [Suspect]
     Active Substance: SUNITINIB MALATE
     Dosage: 37.5 MG, CYCLIC; 2 WEEKS ON AND 1 WEEK OFF
     Route: 048
     Dates: start: 20130310, end: 2013
  18. SUTENT [Suspect]
     Active Substance: SUNITINIB MALATE
     Dosage: 25 MG, DAILY, CYCLIC (FOR 2 WEEKS ON AND 1 WEEK OFF)
     Route: 048
     Dates: start: 2013, end: 2013
  19. SUTENT [Suspect]
     Active Substance: SUNITINIB MALATE
     Dosage: 25 MG, CYCLIC (14 DAYS ON 7 DAYS OFF)
     Dates: start: 201408
  20. XANAX [Concomitant]
     Active Substance: ALPRAZOLAM
     Indication: ANXIETY
     Dosage: UNK, AS NEEDED
  21. XANAX [Concomitant]
     Active Substance: ALPRAZOLAM
     Dosage: UNK, 2X/DAY ( FOR 2 WEEKS)
  22. LEVOTHYROXINE [Concomitant]
     Active Substance: LEVOTHYROXINE
     Dosage: 175 ?G, UNK
  23. ATENOLOL. [Concomitant]
     Active Substance: ATENOLOL
     Indication: HYPERTENSION
     Dosage: SPLITTING 25MG TABLET TWO TIMES A DAY
  24. METOPROLOL [Concomitant]
     Active Substance: METOPROLOL
     Indication: HYPERTENSION
     Dosage: 37.5 MG (ONE AND A HALF TABLET OF 25MG), 2X/DAY

REACTIONS (32)
  - Liver function test abnormal [Recovered/Resolved]
  - Drug intolerance [Recovered/Resolved]
  - Eyelid oedema [Unknown]
  - Insomnia [Recovering/Resolving]
  - Alopecia [Unknown]
  - Yellow skin [Recovering/Resolving]
  - Joint swelling [Unknown]
  - Blood test abnormal [Unknown]
  - Swollen tongue [Recovered/Resolved]
  - Stomatitis [Recovered/Resolved]
  - Tongue disorder [Not Recovered/Not Resolved]
  - Mouth swelling [Not Recovered/Not Resolved]
  - Pain [Unknown]
  - Weight decreased [Unknown]
  - Diarrhoea [Recovering/Resolving]
  - Gingival bleeding [Unknown]
  - Tooth infection [Unknown]
  - Pruritus [Recovered/Resolved]
  - Depression [Unknown]
  - Cerebrovascular accident [Recovered/Resolved]
  - Cerebral haemorrhage [Recovered/Resolved]
  - Fatigue [Not Recovered/Not Resolved]
  - Gastrointestinal sounds abnormal [Unknown]
  - Loose tooth [Unknown]
  - Somnolence [Recovering/Resolving]
  - Hair disorder [Unknown]
  - Peripheral swelling [Unknown]
  - Ill-defined disorder [Recovered/Resolved]
  - Glossodynia [Unknown]
  - Decreased appetite [Not Recovered/Not Resolved]
  - Asthenia [Unknown]
  - Tooth disorder [Unknown]

NARRATIVE: CASE EVENT DATE: 2012
